FAERS Safety Report 15457496 (Version 1)
Quarter: 2018Q4

REPORT INFORMATION
  Report Type: Spontaneous
  Country: US (occurrence: US)
  Receive Date: 20181003
  Receipt Date: 20181003
  Transmission Date: 20190204
  Serious: No
  Sender: FDA-Public Use
  Company Number: US-ANIPHARMA-2018-US-011196

PATIENT
  Age: 13 Year
  Sex: Female
  Weight: 34.47 kg

DRUGS (7)
  1. MIRALAX [Concomitant]
     Active Substance: POLYETHYLENE GLYCOL 3350
  2. FLETCHER^S LAXATIVE FOR CHILDREN [Concomitant]
  3. ERYTHROMYCIN ETHYLSUCCINATE FOR ORAL SUSPENSION USP [Suspect]
     Active Substance: ERYTHROMYCIN ETHYLSUCCINATE
     Indication: GASTRIC HYPOMOTILITY
     Dosage: 3.75 ML TWICE PER DAY
     Route: 048
     Dates: start: 20180623
  4. GABAPENTIN. [Concomitant]
     Active Substance: GABAPENTIN
  5. VALPROIC ACID. [Concomitant]
     Active Substance: VALPROIC ACID
  6. PREVACID [Concomitant]
     Active Substance: LANSOPRAZOLE
  7. VSL PROBIOTIC [Concomitant]

REACTIONS (4)
  - Flatulence [Unknown]
  - Condition aggravated [Unknown]
  - Off label use [Unknown]
  - Abdominal pain [Unknown]

NARRATIVE: CASE EVENT DATE: 20180627
